FAERS Safety Report 19737130 (Version 2)
Quarter: 2021Q3

REPORT INFORMATION
  Report Type: Report from Study
  Country: US (occurrence: US)
  Receive Date: 20210823
  Receipt Date: 20210826
  Transmission Date: 20211014
  Serious: Yes (Other)
  Sender: FDA-Public Use
  Company Number: US-BRISTOL-MYERS SQUIBB COMPANY-BMS-2021-082098

PATIENT
  Age: 87 Year
  Sex: Female

DRUGS (2)
  1. APIXABAN [Suspect]
     Active Substance: APIXABAN
     Indication: DEEP VEIN THROMBOSIS
     Dosage: 5 MILLIGRAM, BID
     Route: 048
     Dates: start: 2021
  2. METOPROLOL SUCCINATE. [Concomitant]
     Active Substance: METOPROLOL SUCCINATE
     Indication: PRODUCT USED FOR UNKNOWN INDICATION
     Dosage: 50 MILLIGRAM ONE TIME A DAY ONCE TIME EACH DAY (SHE WAS TAKING 2 A DAY IN THE HOSPITAL)
     Route: 065

REACTIONS (14)
  - Macular degeneration [Unknown]
  - Back pain [Unknown]
  - Dyspnoea exertional [Unknown]
  - Tremor [Unknown]
  - Dizziness [Unknown]
  - Dystonia [Unknown]
  - Headache [Unknown]
  - Treatment noncompliance [Unknown]
  - Malaise [Unknown]
  - Tongue discomfort [Unknown]
  - Eye irritation [Unknown]
  - Fatigue [Unknown]
  - Blood glucose decreased [Unknown]
  - Hypertension [Recovered/Resolved]
